FAERS Safety Report 9959161 (Version 1)
Quarter: 2014Q1

REPORT INFORMATION
  Report Type: Report from Study
  Country: US (occurrence: US)
  Receive Date: 20140305
  Receipt Date: 20140305
  Transmission Date: 20141002
  Serious: Yes (Other)
  Sender: FDA-Public Use
  Company Number: US-ABBVIE-13P-163-1102531-00

PATIENT
  Age: 48 Year
  Sex: Female

DRUGS (4)
  1. HUMIRA [Suspect]
     Indication: CROHN^S DISEASE
     Dates: start: 201210, end: 201305
  2. ASACOL [Suspect]
     Indication: PRODUCT USED FOR UNKNOWN INDICATION
     Dosage: 2 PILLS 3 TIMES A DAY
     Dates: end: 201305
  3. HUMALOG [Concomitant]
     Indication: DIABETES MELLITUS
     Dosage: PLUS SLIDING SCALE
  4. LANTUS [Concomitant]
     Indication: DIABETES MELLITUS
     Dosage: IN PM

REACTIONS (2)
  - Polyp [Unknown]
  - Drug ineffective [Unknown]
